FAERS Safety Report 10599487 (Version 2)
Quarter: 2014Q4

REPORT INFORMATION
  Report Type: Spontaneous
  Country: NL (occurrence: NL)
  Receive Date: 20141121
  Receipt Date: 20141201
  Transmission Date: 20150529
  Serious: Yes (Other)
  Sender: FDA-Public Use
  Company Number: NL-GLAXOSMITHKLINE-NL2014GSK021059

PATIENT
  Age: 75 Year
  Sex: Male
  Weight: 100 kg

DRUGS (1)
  1. VOTRIENT [Suspect]
     Active Substance: PAZOPANIB HYDROCHLORIDE
     Indication: SYNOVIAL SARCOMA
     Dosage: 800 MG, QD
     Dates: start: 201311, end: 20141027

REACTIONS (1)
  - Nephrotic syndrome [Unknown]

NARRATIVE: CASE EVENT DATE: 20141027
